FAERS Safety Report 9757361 (Version 1)
Quarter: 2013Q4

REPORT INFORMATION
  Report Type: Spontaneous
  Country: SE (occurrence: SE)
  Receive Date: 20131214
  Receipt Date: 20131214
  Transmission Date: 20140711
  Serious: No
  Sender: FDA-Public Use
  Company Number: SE-UCBSA-105605

PATIENT
  Age: 53 Year
  Sex: Male

DRUGS (3)
  1. KEPPRA [Suspect]
     Indication: EPILEPSY
     Dosage: 1000 MG IN MORNING AND 1500 MG IN EVENING
     Dates: start: 20131013
  2. KEPPRA [Suspect]
     Indication: STATUS EPILEPTICUS
     Dosage: 1000 MG IN MORNING AND 1500 MG IN EVENING
     Dates: start: 20131013
  3. VIMPAT [Concomitant]
     Dates: start: 20131013

REACTIONS (1)
  - Leukopenia [Unknown]
